FAERS Safety Report 21465150 (Version 1)
Quarter: 2022Q4

REPORT INFORMATION
  Report Type: Spontaneous
  Country: US (occurrence: None)
  Receive Date: 20221016
  Receipt Date: 20221016
  Transmission Date: 20230113
  Serious: No
  Sender: FDA-Public Use
  Company Number: None

PATIENT
  Age: 33 Year
  Sex: Female
  Weight: 56.25 kg

DRUGS (4)
  1. PAXLOVID [Suspect]
     Active Substance: NIRMATRELVIR\RITONAVIR
     Indication: COVID-19
     Dosage: OTHER QUANTITY : 3 TABLET(S);?FREQUENCY : TWICE A DAY;?
     Route: 048
  2. AMITRIPTYLINE [Concomitant]
  3. Larin FE 1.5 [Concomitant]
  4. LAMOTRIGINE [Concomitant]
     Active Substance: LAMOTRIGINE

REACTIONS (5)
  - Dysgeusia [None]
  - Gastrooesophageal reflux disease [None]
  - Decreased appetite [None]
  - Nausea [None]
  - Dysgeusia [None]

NARRATIVE: CASE EVENT DATE: 20221014
